FAERS Safety Report 6146733-0 (Version None)
Quarter: 2009Q2

REPORT INFORMATION
  Report Type: 
  Country: None (occurrence: None)
  Receive Date: 20090403
  Receipt Date: 20090403
  Transmission Date: 20091009
  Serious: Yes (Other)
  Sender: FDA-Public Use
  Company Number: None

PATIENT
  Age: 27 Year
  Sex: Male
  Weight: 72.5755 kg

DRUGS (1)
  1. ASTEPRO [Suspect]
     Indication: MULTIPLE ALLERGIES
     Dosage: 0.274 ML TWICE DAILY NOSE
     Dates: start: 20090318, end: 20090319

REACTIONS (5)
  - FATIGUE [None]
  - HYPERSOMNIA [None]
  - MIDDLE INSOMNIA [None]
  - OROPHARYNGEAL PAIN [None]
  - PHARYNGEAL DISORDER [None]
